FAERS Safety Report 9707206 (Version 2)
Quarter: 2013Q4

REPORT INFORMATION
  Report Type: Spontaneous
  Country: US (occurrence: US)
  Receive Date: 20131125
  Receipt Date: 20131125
  Transmission Date: 20140711
  Serious: Yes (Hospitalization)
  Sender: FDA-Public Use
  Company Number: US-JNJFOC-20131000117

PATIENT
  Age: 48 Year
  Sex: Female

DRUGS (6)
  1. INVOKANA [Suspect]
     Indication: TYPE 2 DIABETES MELLITUS
     Route: 048
     Dates: start: 2013, end: 201309
  2. PHENTERMINE [Suspect]
     Indication: PRODUCT USED FOR UNKNOWN INDICATION
  3. AMLODIPINE [Concomitant]
  4. LOSARTAN/HYDROCHLOROTHIAZIDE [Concomitant]
  5. GLIPIZIDE [Concomitant]
  6. PIOGLITAZONE [Concomitant]

REACTIONS (6)
  - Renal failure acute [Unknown]
  - Dehydration [Unknown]
  - Chest pain [Unknown]
  - Dyspnoea [Recovered/Resolved]
  - Orthostatic hypotension [Unknown]
  - Polyuria [Unknown]
